FAERS Safety Report 19587646 (Version 1)
Quarter: 2021Q3

REPORT INFORMATION
  Report Type: Spontaneous
  Country: JP (occurrence: JP)
  Receive Date: 20210721
  Receipt Date: 20210721
  Transmission Date: 20211014
  Serious: Yes (Other)
  Sender: FDA-Public Use
  Company Number: JP-PFIZER INC-2021867865

PATIENT
  Age: 12 Year
  Sex: Male
  Weight: 46 kg

DRUGS (5)
  1. DIPYRIDAMOLE. [Interacting]
     Active Substance: DIPYRIDAMOLE
     Indication: IGA NEPHROPATHY
     Dosage: 300 MG, CYCLIC
  2. METHYLPREDNISOLONE SODIUM SUCCINATE. [Suspect]
     Active Substance: METHYLPREDNISOLONE SODIUM SUCCINATE
     Indication: IGA NEPHROPATHY
     Dosage: 1 G, CYCLIC (FOR 2 H FOR 3 CONSECUTIVE DAYS)
     Route: 042
  3. MIZORIBINE [Concomitant]
     Active Substance: MIZORIBINE
     Indication: IGA NEPHROPATHY
     Dosage: 150 MG, CYCLIC
  4. PREDNISOLONE. [Concomitant]
     Active Substance: PREDNISOLONE
     Indication: IGA NEPHROPATHY
     Dosage: 40 MG, CYCLIC
     Route: 048
  5. HEPARIN [Concomitant]
     Active Substance: HEPARIN SODIUM
     Dosage: 10 IU/KG (PER HR)

REACTIONS (3)
  - Angina pectoris [Recovered/Resolved]
  - Myocardial ischaemia [Recovered/Resolved]
  - Drug interaction [Recovered/Resolved]
